FAERS Safety Report 6864719-5 (Version None)
Quarter: 2010Q3

REPORT INFORMATION
  Report Type: 
  Country: None (occurrence: None)
  Receive Date: 20100721
  Receipt Date: 20080331
  Transmission Date: 20110219
  Serious: No
  Sender: FDA-Public Use
  Company Number: US-PFIZER INC-2008029591

PATIENT
  Sex: Female
  Weight: 104.3 kg

DRUGS (5)
  1. CHANTIX [Suspect]
     Indication: SMOKING CESSATION THERAPY
     Route: 048
     Dates: start: 20080301
  2. LISINOPRIL [Concomitant]
     Indication: HYPERTENSION
  3. VITAMINS [Concomitant]
  4. HERBAL NOS/MINERALS NOS [Concomitant]
     Indication: IRRITABLE BOWEL SYNDROME
  5. HERBAL PREPARATION [Concomitant]
     Indication: IRRITABLE BOWEL SYNDROME

REACTIONS (5)
  - ANGER [None]
  - DEPRESSION [None]
  - DYSPNOEA [None]
  - FATIGUE [None]
  - MEMORY IMPAIRMENT [None]
